FAERS Safety Report 5722452-7 (Version None)
Quarter: 2008Q2

REPORT INFORMATION
  Report Type: 
  Country: None (occurrence: None)
  Receive Date: 20080425
  Receipt Date: 20080421
  Transmission Date: 20081010
  Serious: Yes (Disabling, Other)
  Sender: FDA-Public Use
  Company Number: US-GDP-08403609

PATIENT
  Sex: Female
  Weight: 54.4316 kg

DRUGS (5)
  1. PLIAGLIS (LIDOCAINE) (TETRACAINE) CREAM 7%/7% [Suspect]
     Indication: LASER THERAPY
     Dosage: TOPICAL
     Route: 061
     Dates: start: 20080220, end: 20080220
  2. UNSPECIFIED CLEANING SOLUTION USED FOR EYESHIELDS (TECHNICAL DISINFECT [Suspect]
     Indication: PROPHYLAXIS
     Dosage: OTHER
  3. ANAESTHETICS FOR TOPICAL USE [Concomitant]
  4. SODIUM CHLORIDE [Concomitant]
  5. PERIOSTAT [Concomitant]

REACTIONS (6)
  - CONJUNCTIVITIS [None]
  - EYE BURNS [None]
  - EYE PAIN [None]
  - EYE SWELLING [None]
  - POST PROCEDURAL COMPLICATION [None]
  - VISION BLURRED [None]
